FAERS Safety Report 4765631-8 (Version None)
Quarter: 2005Q3

REPORT INFORMATION
  Report Type: 
  Country: None (occurrence: None)
  Receive Date: 20050912
  Receipt Date: 20050523
  Transmission Date: 20060218
  Serious: Yes (Other)
  Sender: FDA-Public Use
  Company Number: DE-NOVOPROD-244352

PATIENT
  Age: 65 Year
  Sex: Male
  Weight: 118 kg

DRUGS (6)
  1. LEVEMIR [Suspect]
     Indication: DIABETES MELLITUS
     Dosage: 6 IU, QD
     Route: 058
     Dates: start: 20041230
  2. LEVEMIR [Suspect]
     Dosage: 12 IU, QD
     Route: 058
     Dates: end: 20050511
  3. RAMIPRIL [Concomitant]
     Dosage: UNK, QD
     Route: 048
  4. SPIRONOLACTONE [Concomitant]
     Dosage: 50 MG, QD
     Route: 048
  5. SIMVASTATIN [Concomitant]
     Dosage: UNK, QD
     Route: 048
  6. MARCUMAR [Concomitant]
     Dosage: UNK, QD
     Route: 048

REACTIONS (6)
  - DERMATITIS [None]
  - EOSINOPHILIA [None]
  - INJECTION SITE ERYTHEMA [None]
  - INJECTION SITE INDURATION [None]
  - PRURITUS [None]
  - RASH [None]
